FAERS Safety Report 20223661 (Version 1)
Quarter: 2021Q4

REPORT INFORMATION
  Report Type: Spontaneous
  Country: US (occurrence: None)
  Receive Date: 20211223
  Receipt Date: 20211223
  Transmission Date: 20220303
  Serious: No
  Sender: FDA-Public Use
  Company Number: None

PATIENT
  Age: 51 Year
  Sex: Male

DRUGS (1)
  1. CABOMETYX [Suspect]
     Active Substance: CABOZANTINIB S-MALATE
     Indication: Renal cancer
     Dosage: FREQUENCY : DAILY;?
     Route: 048
     Dates: start: 20210910, end: 20210917

REACTIONS (5)
  - Decreased appetite [None]
  - Nausea [None]
  - Vomiting [None]
  - Therapy interrupted [None]
  - Therapy change [None]
